FAERS Safety Report 10385923 (Version 1)
Quarter: 2014Q3

REPORT INFORMATION
  Report Type: Spontaneous
  Country: US (occurrence: US)
  Receive Date: 20140814
  Receipt Date: 20140814
  Transmission Date: 20150326
  Serious: Yes (Hospitalization, Other)
  Sender: FDA-Public Use
  Company Number: US-ABBVIE-14P-163-1271804-00

PATIENT
  Age: 43 Year
  Sex: Male

DRUGS (1)
  1. ANDROGEL [Suspect]
     Active Substance: TESTOSTERONE
     Indication: BLOOD TESTOSTERONE DECREASED
     Dates: start: 20130304, end: 201308

REACTIONS (10)
  - Pulmonary embolism [Unknown]
  - Fear [Unknown]
  - Feeling abnormal [Unknown]
  - Deep vein thrombosis [Unknown]
  - Anhedonia [Unknown]
  - Anxiety [Unknown]
  - Impaired work ability [Unknown]
  - Pain [Unknown]
  - Lung disorder [Unknown]
  - Economic problem [Unknown]

NARRATIVE: CASE EVENT DATE: 201308
